FAERS Safety Report 4444485-3 (Version None)
Quarter: 2004Q3

REPORT INFORMATION
  Report Type: 
  Country: None (occurrence: None)
  Receive Date: 20040909
  Receipt Date: 20040830
  Transmission Date: 20050211
  Serious: Yes (Life-Threatening, Hospitalization, Disabling)
  Sender: FDA-Public Use
  Company Number: AT-JNJFOC-20040809692

PATIENT
  Age: 79 Year
  Sex: Male
  Weight: 81 kg

DRUGS (9)
  1. REMICADE [Suspect]
     Dosage: 30 INFUSIONS
     Route: 042
  2. METHOTREXATE [Concomitant]
     Route: 049
  3. FLECAINIDE ACETATE [Concomitant]
     Indication: ARRHYTHMIA
     Route: 049
  4. MOXIFLOXACINE HCL [Concomitant]
     Indication: INFECTION PROPHYLAXIS
     Route: 049
  5. PANTOPRAZOLE [Concomitant]
     Indication: DUODENAL ULCER
     Route: 049
  6. CLOPIDOGREL [Concomitant]
     Route: 049
  7. FINASTERIDE [Concomitant]
     Route: 049
  8. ALLOPURINOLE [Concomitant]
     Indication: HYPERURICAEMIA
     Route: 049
  9. GABAPENTIN [Concomitant]
     Indication: DIABETIC NEUROPATHY
     Route: 049

REACTIONS (5)
  - BILE DUCT CANCER [None]
  - CHOLESTASIS [None]
  - HAEMOGLOBIN DECREASED [None]
  - METASTASES TO LIVER [None]
  - RED BLOOD CELL COUNT DECREASED [None]
